FAERS Safety Report 19085604 (Version 2)
Quarter: 2021Q2

REPORT INFORMATION
  Report Type: Report from Study
  Country: US (occurrence: US)
  Receive Date: 20210401
  Receipt Date: 20210413
  Transmission Date: 20210717
  Serious: Yes (Hospitalization, Other)
  Sender: FDA-Public Use
  Company Number: US-AGIOS-2103US02620

PATIENT

DRUGS (3)
  1. TIBSOVO [Suspect]
     Active Substance: IVOSIDENIB
     Indication: ACUTE MYELOID LEUKAEMIA
     Dosage: 500 MILLIGRAM (TWO 250MG TABLETS), QD
     Route: 048
     Dates: start: 20210304, end: 20210318
  2. NEUPOGEN [Concomitant]
     Active Substance: FILGRASTIM
  3. LEVAQUIN [Interacting]
     Active Substance: LEVOFLOXACIN

REACTIONS (8)
  - Laboratory test abnormal [Unknown]
  - Pneumonia [Unknown]
  - Full blood count decreased [Recovering/Resolving]
  - Chills [Unknown]
  - Palpitations [Unknown]
  - Stomatitis [Unknown]
  - Dyspnoea [Unknown]
  - Labelled drug-drug interaction medication error [Unknown]
